FAERS Safety Report 4283905-4 (Version None)
Quarter: 2004Q1

REPORT INFORMATION
  Report Type: 
  Country: None (occurrence: None)
  Receive Date: 20040115
  Receipt Date: 20030717
  Transmission Date: 20041129
  Serious: Yes (Death)
  Sender: FDA-Public Use
  Company Number: US-JNJFOC-20030604042

PATIENT
  Age: 48 Year
  Sex: Female

DRUGS (1)
  1. DOXIL [Suspect]
     Indication: OVARIAN CANCER
     Dosage: 70 MG, INTRAVENOUS
     Route: 042
     Dates: start: 20030320, end: 20030320

REACTIONS (1)
  - DISEASE PROGRESSION [None]
